FAERS Safety Report 9710194 (Version 1)
Quarter: 2013Q4

REPORT INFORMATION
  Report Type: Report from Study
  Country: US (occurrence: US)
  Receive Date: 20131126
  Receipt Date: 20131126
  Transmission Date: 20140711
  Serious: Yes (Other)
  Sender: FDA-Public Use
  Company Number: US-ROCHE-1304689

PATIENT
  Sex: Male

DRUGS (6)
  1. AVASTIN [Suspect]
     Indication: GLAUCOMA
     Route: 065
  2. AVASTIN [Suspect]
     Indication: VENOUS OCCLUSION
  3. AVASTIN [Suspect]
     Indication: AGE-RELATED MACULAR DEGENERATION
  4. BRIMONIDINE [Concomitant]
     Route: 065
  5. AZOPT [Concomitant]
     Route: 065
  6. TIMOLOL [Concomitant]
     Route: 065

REACTIONS (6)
  - Choroidal detachment [Unknown]
  - Ciliary body disorder [Unknown]
  - Corneal oedema [Unknown]
  - Intraocular lens implant [Unknown]
  - Cataract nuclear [Unknown]
  - Chorioretinal disorder [Unknown]
